FAERS Safety Report 22086279 (Version 5)
Quarter: 2023Q2

REPORT INFORMATION
  Report Type: Spontaneous
  Country: TR (occurrence: TR)
  Receive Date: 20230310
  Receipt Date: 20230619
  Transmission Date: 20230721
  Serious: Yes (Hospitalization)
  Sender: FDA-Public Use
  Company Number: TR-BIOGEN-2023BI01191513

PATIENT
  Age: 34 Year
  Sex: Male
  Weight: 71.3 kg

DRUGS (1)
  1. TYSABRI [Suspect]
     Active Substance: NATALIZUMAB
     Indication: Relapsing-remitting multiple sclerosis
     Dosage: 11 DOSES OF TYSABRI ADMINISTERED
     Route: 050
     Dates: start: 20220306, end: 20230206

REACTIONS (3)
  - Progressive multifocal leukoencephalopathy [Recovered/Resolved with Sequelae]
  - Immune reconstitution inflammatory syndrome [Recovered/Resolved with Sequelae]
  - Lymphocyte count decreased [Unknown]

NARRATIVE: CASE EVENT DATE: 20230210
